FAERS Safety Report 14113689 (Version 6)
Quarter: 2018Q2

REPORT INFORMATION
  Report Type: Report from Study
  Country: CO (occurrence: CO)
  Receive Date: 20171023
  Receipt Date: 20180402
  Transmission Date: 20180711
  Serious: Yes (Other)
  Sender: FDA-Public Use
  Company Number: CO-JNJFOC-20171013406

PATIENT
  Age: 54 Year
  Sex: Female
  Weight: 56 kg

DRUGS (2)
  1. IMBRUVICA [Suspect]
     Active Substance: IBRUTINIB
     Indication: CHRONIC LYMPHOCYTIC LEUKAEMIA
     Route: 048
     Dates: start: 20180220
  2. IMBRUVICA [Suspect]
     Active Substance: IBRUTINIB
     Indication: CHRONIC LYMPHOCYTIC LEUKAEMIA
     Route: 048
     Dates: start: 20170915, end: 20171214

REACTIONS (9)
  - Dysphonia [Recovering/Resolving]
  - Rash [Unknown]
  - Bone pain [Unknown]
  - Dizziness [Not Recovered/Not Resolved]
  - Nasal congestion [Recovering/Resolving]
  - Muscle spasms [Not Recovered/Not Resolved]
  - Petechiae [Recovering/Resolving]
  - Malaise [Unknown]
  - Melaena [Not Recovered/Not Resolved]

NARRATIVE: CASE EVENT DATE: 20170915
